FAERS Safety Report 24090622 (Version 1)
Quarter: 2024Q3

REPORT INFORMATION
  Report Type: Report from Study
  Country: US (occurrence: US)
  Receive Date: 20240715
  Receipt Date: 20240715
  Transmission Date: 20241017
  Serious: No
  Sender: TG THERAPEUTICS
  Company Number: US-TG THERAPEUTICS INC.-TGT003681

PATIENT
  Age: 42 Year
  Sex: Male

DRUGS (1)
  1. UBLITUXIMAB [Suspect]
     Active Substance: UBLITUXIMAB
     Indication: Multiple sclerosis
     Dosage: 150 MILLIGRAM
     Route: 042
     Dates: start: 20240517, end: 20240517

REACTIONS (3)
  - Musculoskeletal stiffness [Recovering/Resolving]
  - Gait disturbance [Unknown]
  - Muscular weakness [Unknown]

NARRATIVE: CASE EVENT DATE: 20240519
